FAERS Safety Report 9386871 (Version 1)
Quarter: 2013Q3

REPORT INFORMATION
  Report Type: Spontaneous
  Country: FR (occurrence: FR)
  Receive Date: 20130708
  Receipt Date: 20130708
  Transmission Date: 20140515
  Serious: Yes (Other)
  Sender: FDA-Public Use
  Company Number: FR-ROCHE-1245170

PATIENT
  Age: 90 Year
  Sex: Female

DRUGS (3)
  1. ZELBORAF [Suspect]
     Indication: METASTATIC MALIGNANT MELANOMA
     Route: 048
  2. PREVISCAN (FRANCE) [Concomitant]
  3. SINTRON (INGREDIENTS UNKNOWN) [Concomitant]

REACTIONS (2)
  - International normalised ratio increased [Not Recovered/Not Resolved]
  - International normalised ratio fluctuation [Not Recovered/Not Resolved]
